FAERS Safety Report 8911102 (Version 2)
Quarter: 2012Q4

REPORT INFORMATION
  Report Type: Report from Study
  Country: FI (occurrence: FI)
  Receive Date: 20121116
  Receipt Date: 20121126
  Transmission Date: 20130627
  Serious: Yes (Hospitalization, Disabling, Other)
  Sender: FDA-Public Use
  Company Number: FI-ASTELLAS-2012EU008724

PATIENT
  Age: 73 Year
  Sex: Male
  Weight: 67 kg

DRUGS (8)
  1. ENZALUTAMIDE [Suspect]
     Indication: PROSTATE CANCER METASTATIC
     Dosage: 160 mg, UID/QD
     Route: 048
     Dates: start: 20120229
  2. MAREVAN [Suspect]
     Indication: ATRIAL FIBRILLATION
     Dosage: 5 mg, prn
     Route: 048
     Dates: start: 200509, end: 20120417
  3. TRAMAL [Suspect]
     Indication: PAIN
     Dosage: 100 mg, bid
     Route: 048
     Dates: start: 20120326, end: 20120419
  4. DIGOXIN [Concomitant]
     Indication: CARDIOMYOPATHY
     Dosage: 0.125 mg, UID/QD
     Route: 048
     Dates: start: 200509
  5. BISOPROLOL [Concomitant]
     Indication: ATRIAL FIBRILLATION
     Dosage: 7.5 mg, bid
     Route: 048
     Dates: start: 200509
  6. CARDACE                            /00885601/ [Concomitant]
     Indication: CARDIOMYOPATHY
     Dosage: 2.5 mg, bid
     Route: 048
     Dates: start: 200509
  7. ENANTONE                           /00726901/ [Concomitant]
     Indication: PROSTATE CANCER
     Dosage: 11.25 mg, every 3 months
     Route: 058
     Dates: start: 20110331
  8. FURESIS [Concomitant]
     Indication: CARDIOMYOPATHY
     Dosage: 20 mg, UID/QD
     Route: 048
     Dates: start: 2005

REACTIONS (2)
  - Extradural haematoma [Recovered/Resolved with Sequelae]
  - Coagulation time prolonged [Recovered/Resolved]
